FAERS Safety Report 5885399-1 (Version None)
Quarter: 2008Q3

REPORT INFORMATION
  Report Type: 
  Country: None (occurrence: None)
  Receive Date: 20080916
  Receipt Date: 20080910
  Transmission Date: 20090109
  Serious: Yes (Hospitalization)
  Sender: FDA-Public Use
  Company Number: US-BAXTER-2008BH008362

PATIENT
  Age: 56 Year
  Sex: Male

DRUGS (4)
  1. DIANEAL [Suspect]
     Indication: RENAL FAILURE CHRONIC
     Dosage: DOSE UNIT:UNKNOWN
     Route: 033
     Dates: start: 20060623
  2. DIANEAL [Suspect]
     Indication: CONGENITAL CYSTIC KIDNEY DISEASE
     Dosage: DOSE UNIT:UNKNOWN
     Route: 033
     Dates: start: 20060623
  3. DIANEAL [Suspect]
     Indication: RENAL FAILURE CHRONIC
     Dosage: DOSE UNIT:UNKNOWN
     Route: 033
     Dates: start: 20060623
  4. DIANEAL [Suspect]
     Indication: CONGENITAL CYSTIC KIDNEY DISEASE
     Dosage: DOSE UNIT:UNKNOWN
     Route: 033
     Dates: start: 20060623

REACTIONS (4)
  - CONSTIPATION [None]
  - HYPERTENSION [None]
  - NAUSEA [None]
  - VOMITING [None]
